FAERS Safety Report 17230079 (Version 2)
Quarter: 2020Q1

REPORT INFORMATION
  Report Type: Spontaneous
  Country: BE (occurrence: BE)
  Receive Date: 20200103
  Receipt Date: 20200113
  Transmission Date: 20200409
  Serious: Yes (Hospitalization)
  Sender: FDA-Public Use
  Company Number: BE-TEVA-2019-BE-1160594

PATIENT
  Age: 80 Year
  Sex: Male
  Weight: 63.2 kg

DRUGS (8)
  1. OMEPRAZOLE 20 MG [Concomitant]
     Active Substance: OMEPRAZOLE
     Dosage: 40 MG 1 DAYS
     Route: 048
  2. METFORMINE 850 MG [Suspect]
     Active Substance: METFORMIN HYDROCHLORIDE
     Indication: TYPE 2 DIABETES MELLITUS
     Dosage: 850 MG 1 DAYS
  3. NEBIVOLOL 5 MG [Concomitant]
     Active Substance: NEBIVOLOL
     Dosage: 2.5 MG 1 DAYS
  4. SIMVASTATINE 20 MG [Concomitant]
     Active Substance: SIMVASTATIN
     Dosage: 20 MG 1 DAYS
  5. ALLOPURINOL 100 MG [Concomitant]
     Active Substance: ALLOPURINOL
     Dosage: 100 MG 1 DAYS
  6. AMLODIPINE [Concomitant]
     Active Substance: AMLODIPINE BESYLATE
     Dosage: 5 MG 1 DAYS
  7. ASAFLOW 80 MG [Concomitant]
     Active Substance: ASPIRIN
     Dosage: 80 MG 1 DAYS
  8. METFORMINE 850 MG [Suspect]
     Active Substance: METFORMIN HYDROCHLORIDE
     Dosage: 20 MG 1 DAYS

REACTIONS (10)
  - Metabolic acidosis [Unknown]
  - Pupil fixed [Unknown]
  - Agitation [Unknown]
  - Lactic acidosis [Unknown]
  - Hyperventilation [Unknown]
  - Corneal reflex decreased [Unknown]
  - Lethargy [Unknown]
  - Respiratory rate increased [Unknown]
  - Confusional state [Unknown]
  - Respiratory acidosis [Unknown]

NARRATIVE: CASE EVENT DATE: 20191110
